FAERS Safety Report 4438665-0 (Version None)
Quarter: 2004Q3

REPORT INFORMATION
  Report Type: 
  Country: None (occurrence: None)
  Receive Date: 20040827
  Receipt Date: 20040818
  Transmission Date: 20050211
  Serious: Yes (Death)
  Sender: FDA-Public Use
  Company Number: 2004228880JP

PATIENT
  Age: 34 Year
  Sex: Female

DRUGS (3)
  1. HALCION [Suspect]
     Indication: INSOMNIA
     Dosage: ORAL
     Route: 048
     Dates: start: 20030801, end: 20040801
  2. DEPAS (ETIZOLAM) [Suspect]
     Indication: MENTAL DISORDER
     Dosage: ORAL
     Route: 048
     Dates: start: 20030801, end: 20040801
  3. LEVOMEPROMAZINE (LEVOMEPROMAZINE) [Suspect]
     Indication: MENTAL DISORDER
     Dosage: ORAL
     Route: 048
     Dates: start: 20030801, end: 20040801

REACTIONS (1)
  - COMPLETED SUICIDE [None]
